FAERS Safety Report 11277580 (Version 1)
Quarter: 2015Q3

REPORT INFORMATION
  Report Type: Spontaneous
  Country: CH (occurrence: FR)
  Receive Date: 20150716
  Receipt Date: 20150716
  Transmission Date: 20151125
  Serious: Yes (Hospitalization)
  Sender: FDA-Public Use
  Company Number: CH-LPDUSPRD-20150546

PATIENT
  Age: 64 Year
  Sex: Female

DRUGS (6)
  1. LOXEN LP [Suspect]
     Active Substance: NICARDIPINE
     Dosage: 2 DOSAGE FORMS, 50 MG, 2 IN 1D
     Route: 048
     Dates: start: 20150328, end: 20150528
  2. BISOPROLOL [Suspect]
     Active Substance: BISOPROLOL
     Dosage: 2 DOSAGE FORMS, 2 IN 1D
     Route: 065
     Dates: start: 201502
  3. FUROSEMIDE. [Concomitant]
     Active Substance: FUROSEMIDE
     Dosage: 40 MG, 1 IN 1D
     Route: 065
  4. INEXIUM [Concomitant]
     Active Substance: ESOMEPRAZOLE
     Dosage: 120 MG, 3 IN 1D
     Route: 065
  5. VENOFER [Suspect]
     Active Substance: IRON SUCROSE
     Dosage: 3 COURSES
     Route: 065
     Dates: start: 201502, end: 201504
  6. ELIQUIS [Suspect]
     Active Substance: APIXABAN
     Dosage: 2 DOSAGE FORM DAILY
     Route: 048
     Dates: start: 20150315, end: 20150528

REACTIONS (1)
  - Thrombocytopenia [Unknown]

NARRATIVE: CASE EVENT DATE: 20150528
